FAERS Safety Report 7086620-7 (Version None)
Quarter: 2010Q4

REPORT INFORMATION
  Report Type: 
  Country: None (occurrence: None)
  Receive Date: 20101105
  Receipt Date: 20101101
  Transmission Date: 20110411
  Serious: Yes (Death, Life-Threatening, Hospitalization)
  Sender: FDA-Public Use
  Company Number: NL-B.I. PHARMACEUTICALS,INC./RIDGEFIELD-2010-NL-00450NL

PATIENT
  Sex: Female
  Weight: 78 kg

DRUGS (7)
  1. PRADAXA [Suspect]
     Indication: PROPHYLAXIS
     Dosage: 150 MG
     Route: 048
     Dates: start: 20100927, end: 20101008
  2. DICLOFENAC SODIUM [Concomitant]
     Indication: PAIN
     Dosage: 150 MG
     Route: 048
     Dates: start: 20100926, end: 20101008
  3. SIMVASTATIN [Concomitant]
     Indication: HYPERCHOLESTEROLAEMIA
     Dosage: 40 MG
     Route: 048
     Dates: end: 20101012
  4. TRAMADOL HCL [Concomitant]
     Indication: PAIN
     Dosage: 150 MG
     Route: 048
     Dates: start: 20100926, end: 20101012
  5. FRAXIPARINE [Concomitant]
     Indication: PROPHYLAXIS
     Dosage: 2800 U
     Route: 058
     Dates: start: 20101008
  6. FERROFUMARAAT [Concomitant]
     Dosage: 600 MG
     Dates: start: 20101008, end: 20101012
  7. PANTOPRAZOLE SODIUM [Concomitant]
     Dosage: 40 MG
     Dates: end: 20101012

REACTIONS (2)
  - CEREBROVASCULAR ACCIDENT [None]
  - THROMBOCYTOPENIA [None]
